FAERS Safety Report 11248647 (Version 1)
Quarter: 2015Q3

REPORT INFORMATION
  Report Type: Spontaneous
  Country: US (occurrence: US)
  Receive Date: 20150708
  Receipt Date: 20150708
  Transmission Date: 20151125
  Serious: No
  Sender: FDA-Public Use
  Company Number: US-ELI_LILLY_AND_COMPANY-US200912005432

PATIENT
  Age: 41 Year
  Sex: Female

DRUGS (1)
  1. FLUOXETINE HYDROCHLORIDE. [Suspect]
     Active Substance: FLUOXETINE HYDROCHLORIDE
     Indication: MAJOR DEPRESSION

REACTIONS (15)
  - Dry mouth [Unknown]
  - Loss of libido [Unknown]
  - Nausea [Unknown]
  - Sedation [Unknown]
  - Fatigue [Unknown]
  - Tremor [Unknown]
  - Decreased appetite [Unknown]
  - Gastrointestinal tract irritation [Unknown]
  - Hyperhidrosis [Unknown]
  - Dyskinesia [Unknown]
  - Drug ineffective [Unknown]
  - Sleep disorder [Unknown]
  - Affect lability [Unknown]
  - Anorgasmia [Unknown]
  - Weight increased [Unknown]
